FAERS Safety Report 11813045 (Version 2)
Quarter: 2016Q1

REPORT INFORMATION
  Report Type: Spontaneous
  Country: US (occurrence: US)
  Receive Date: 20151209
  Receipt Date: 20160116
  Transmission Date: 20160525
  Serious: Yes (Hospitalization)
  Sender: FDA-Public Use
  Company Number: US-AUROBINDO-AUR-APL-2015-11156

PATIENT
  Sex: Male
  Weight: 127.6 kg

DRUGS (14)
  1. CARVEDILOL. [Suspect]
     Active Substance: CARVEDILOL
     Indication: HYPERTENSION
     Dosage: 125 MG, TWO TIMES A DAY
     Route: 048
     Dates: start: 1995
  2. CLOPIDOGREL [Suspect]
     Active Substance: CLOPIDOGREL BISULFATE
     Indication: PROPHYLAXIS
     Dosage: 75 MG, ONCE A DAY
     Route: 048
     Dates: start: 201409
  3. VITAMIN C [Concomitant]
     Active Substance: ASCORBIC ACID
     Indication: MEDICAL DIET
     Dosage: 1000 MG, TWO TIMES A DAY
     Route: 048
     Dates: start: 1994
  4. SIMVASTATIN 40MG [Suspect]
     Active Substance: SIMVASTATIN
     Indication: HYPERCHOLESTEROLAEMIA
     Dosage: 40 MG, ONCE A DAY
     Route: 048
     Dates: start: 2002
  5. FENOFIBRATE. [Suspect]
     Active Substance: FENOFIBRATE
     Indication: HYPERCHOLESTEROLAEMIA
     Dosage: 160 MG, ONCE A DAY
     Route: 048
     Dates: start: 201409
  6. NOVOLOG [Concomitant]
     Active Substance: INSULIN ASPART
     Indication: TYPE 2 DIABETES MELLITUS
     Dosage: 90 ? QAM 70/30
     Route: 058
     Dates: start: 1998
  7. METFORMIN [Suspect]
     Active Substance: METFORMIN HYDROCHLORIDE
     Indication: TYPE 2 DIABETES MELLITUS
     Dosage: 1000 MG, TWO TIMES A DAY
     Route: 048
     Dates: start: 1997
  8. BUPROPION. [Suspect]
     Active Substance: BUPROPION
     Indication: DEPRESSION
     Dosage: 150 MG, ONCE A DAY
     Route: 048
     Dates: start: 2013
  9. GLIPIZIDE. [Suspect]
     Active Substance: GLIPIZIDE
     Indication: TYPE 2 DIABETES MELLITUS
     Dosage: 10 MG, TWO TIMES A DAY
     Route: 048
     Dates: start: 1994
  10. LISINOPRIL. [Suspect]
     Active Substance: LISINOPRIL
     Indication: HYPERTENSION
     Dosage: 20 MG, TWO TIMES A DAY
     Route: 048
     Dates: start: 1993
  11. VITAMIN D                          /00107901/ [Concomitant]
     Active Substance: ERGOCALCIFEROL
     Indication: MEDICAL DIET
     Dosage: 3000 IU, ONCE A DAY
     Route: 048
     Dates: start: 2000
  12. MELOXICAM 15MG [Suspect]
     Active Substance: MELOXICAM
     Indication: OSTEOARTHRITIS
     Dosage: 15 MG, ONCE A DAY
     Route: 048
     Dates: start: 201308
  13. FOLBEE [Concomitant]
     Indication: MEDICAL DIET
     Dosage: 1 MG, ONCE A DAY
     Route: 048
     Dates: start: 2002
  14. NOVOLOG [Concomitant]
     Active Substance: INSULIN ASPART
     Dosage: 70 ? QPM
     Route: 058
     Dates: start: 1998

REACTIONS (1)
  - Bronchitis [Recovering/Resolving]

NARRATIVE: CASE EVENT DATE: 20151116
